FAERS Safety Report 19456584 (Version 2)
Quarter: 2021Q3

REPORT INFORMATION
  Report Type: Spontaneous
  Country: NL (occurrence: NL)
  Receive Date: 20210624
  Receipt Date: 20210825
  Transmission Date: 20211014
  Serious: Yes (Hospitalization, Other)
  Sender: FDA-Public Use
  Company Number: NL-AUROBINDO-AUR-APL-2021-026438

PATIENT
  Age: 74 Year
  Sex: Female
  Weight: 81 kg

DRUGS (3)
  1. VALACICLOVIR [Suspect]
     Active Substance: VALACYCLOVIR HYDROCHLORIDE
     Indication: PROPHYLAXIS
     Dosage: 500 MILLIGRAM, ONCE A DAY (1D)
     Route: 048
     Dates: start: 20210509, end: 20210608
  2. COTRIMOXAZOL [Suspect]
     Active Substance: SULFAMETHOXAZOLE\TRIMETHOPRIM
     Indication: PROPHYLAXIS
     Dosage: 80 MILLIGRAM, ONCE A DAY (1D)
     Route: 048
     Dates: start: 20210513, end: 20210603
  3. MESNA. [Concomitant]
     Active Substance: MESNA
     Indication: NON-SMALL CELL LUNG CANCER
     Dosage: 780 MILLIGRAM ( CYC)
     Route: 042
     Dates: start: 20210426

REACTIONS (1)
  - Toxic skin eruption [Not Recovered/Not Resolved]

NARRATIVE: CASE EVENT DATE: 20210607
